FAERS Safety Report 9581267 (Version 8)
Quarter: 2014Q1

REPORT INFORMATION
  Report Type: Spontaneous
  Country: US (occurrence: US)
  Receive Date: 20131002
  Receipt Date: 20140225
  Transmission Date: 20141002
  Serious: No
  Sender: FDA-Public Use
  Company Number: US-PFIZER INC-2013277894

PATIENT
  Age: 51 Year
  Sex: Male
  Weight: 76.64 kg

DRUGS (6)
  1. SUTENT [Suspect]
     Indication: RENAL CANCER
     Dosage: 50 MG, DAILY (4 WEEKS ON, TWO WEEKS OFF)
     Dates: start: 20130916
  2. SUTENT [Suspect]
     Dosage: 50 MG, DAILY
     Route: 048
     Dates: start: 20140116
  3. ZYRTEC [Concomitant]
     Dosage: UNK
  4. AMLODIPINE [Concomitant]
     Dosage: 10 MG, UNK
  5. CARVEDILOL [Concomitant]
     Dosage: UNK
  6. RANITIDINE [Concomitant]
     Dosage: UNK

REACTIONS (12)
  - Back pain [Recovering/Resolving]
  - Headache [Recovering/Resolving]
  - Diarrhoea [Not Recovered/Not Resolved]
  - Pain in extremity [Recovering/Resolving]
  - Epistaxis [Recovered/Resolved]
  - Hypertension [Not Recovered/Not Resolved]
  - Nasal dryness [Unknown]
  - Constipation [Unknown]
  - Oral pain [Unknown]
  - Palmar-plantar erythrodysaesthesia syndrome [Unknown]
  - Swelling face [Unknown]
  - Dyspepsia [Unknown]
